FAERS Safety Report 6651005-1 (Version None)
Quarter: 2010Q1

REPORT INFORMATION
  Report Type: 
  Country: None (occurrence: None)
  Receive Date: 20100325
  Receipt Date: 20090916
  Transmission Date: 20100710
  Serious: Yes (Hospitalization)
  Sender: FDA-Public Use
  Company Number: GB-CELGENEUS-167-C5013-09041530

PATIENT
  Sex: Female
  Weight: 80.9 kg

DRUGS (2)
  1. CC-5013 [Suspect]
     Route: 048
     Dates: start: 20080512
  2. FLOXACILLIN SODIUM [Concomitant]
     Route: 048
     Dates: start: 20090414

REACTIONS (1)
  - RHINOVIRUS INFECTION [None]
